FAERS Safety Report 22276644 (Version 1)
Quarter: 2023Q2

REPORT INFORMATION
  Report Type: Spontaneous
  Country: CA (occurrence: CA)
  Receive Date: 20230503
  Receipt Date: 20230503
  Transmission Date: 20230722
  Serious: Yes (Other)
  Sender: FDA-Public Use
  Company Number: CA-JNJFOC-20230466237

PATIENT
  Age: 30 Year
  Sex: Male
  Weight: 117 kg

DRUGS (5)
  1. REMICADE [Suspect]
     Active Substance: INFLIXIMAB
     Indication: Crohn^s disease
     Route: 041
  2. INFLIXIMAB [Suspect]
     Active Substance: INFLIXIMAB
     Indication: Crohn^s disease
     Route: 042
  3. CYANOCOBALAMIN [Concomitant]
     Active Substance: CYANOCOBALAMIN
  4. FOLATE SODIUM [Concomitant]
     Active Substance: FOLATE SODIUM
  5. METHOTREXATE [Concomitant]
     Active Substance: METHOTREXATE

REACTIONS (5)
  - Anal haemorrhage [Unknown]
  - Anorectal discomfort [Unknown]
  - Bowel movement irregularity [Unknown]
  - Off label use [Unknown]
  - Intentional product use issue [Unknown]
